FAERS Safety Report 17518924 (Version 1)
Quarter: 2020Q1

REPORT INFORMATION
  Report Type: Spontaneous
  Country: US (occurrence: US)
  Receive Date: 20200310
  Receipt Date: 20200310
  Transmission Date: 20200409
  Serious: Yes (Life-Threatening, Hospitalization, Other)
  Sender: FDA-Public Use
  Company Number: US-AMGEN-USASP2020036594

PATIENT

DRUGS (1)
  1. FILGRASTIM [Suspect]
     Active Substance: FILGRASTIM
     Indication: HAEMATOPOIETIC STEM CELL MOBILISATION
     Dosage: 10 MICROGRAM/KILOGRAM ROUNDED TO COMBINATIONS OF 300 MICROGRAM/KILOGRAM  AND 480 MICROGRAM/KILOGRAM
     Route: 065

REACTIONS (13)
  - Neurological symptom [Unknown]
  - Syncope [Unknown]
  - Headache [Unknown]
  - Cardiovascular disorder [Unknown]
  - Pyrexia [Unknown]
  - Hypokalaemia [Unknown]
  - Pain [Unknown]
  - Hypersensitivity [Unknown]
  - Bone pain [Unknown]
  - Gastrointestinal disorder [Unknown]
  - Unevaluable event [Unknown]
  - Haemorrhage [Unknown]
  - Thrombocytopenia [Unknown]
